FAERS Safety Report 6910166-7 (Version None)
Quarter: 2010Q3

REPORT INFORMATION
  Report Type: 
  Country: None (occurrence: None)
  Receive Date: 20100806
  Receipt Date: 20100518
  Transmission Date: 20110219
  Serious: Yes (Death, Hospitalization)
  Sender: FDA-Public Use
  Company Number: GB-RANBAXY-2010RR-33093

PATIENT
  Age: 70 Year
  Sex: Male

DRUGS (7)
  1. SIMVASTATIN [Suspect]
     Indication: HYPERCHOLESTEROLAEMIA
     Dosage: 40 MG, UNK
     Route: 048
  2. ERYTHROMYCIN [Suspect]
     Indication: PSOAS ABSCESS
     Dosage: 250 MG, QID
     Route: 065
  3. FLUCLOXACILLIN [Concomitant]
     Indication: PSOAS ABSCESS
     Dosage: UNK
     Route: 042
  4. METRONIDAZOLE [Concomitant]
     Dosage: UNK
     Route: 042
  5. FLUCLOXACILLIN [Concomitant]
     Dosage: 500 MG, QID
     Route: 048
  6. CEFUROXIME [Concomitant]
     Dosage: UNK
     Route: 042
  7. CLARITHROMYCIN [Concomitant]
     Dosage: 500 MG, BID
     Dates: start: 20081208, end: 20081209

REACTIONS (3)
  - DRUG INTERACTION [None]
  - MUSCULAR WEAKNESS [None]
  - RHABDOMYOLYSIS [None]
